FAERS Safety Report 9261080 (Version 1)
Quarter: 2013Q2

REPORT INFORMATION
  Report Type: Spontaneous
  Country: US (occurrence: US)
  Receive Date: 20130429
  Receipt Date: 20130429
  Transmission Date: 20140414
  Serious: No
  Sender: FDA-Public Use
  Company Number: US-AMGEN-USASP2013005988

PATIENT
  Age: 83 Year
  Sex: Male

DRUGS (1)
  1. SENSIPAR [Suspect]
     Indication: SECONDARY HYPERTHYROIDISM
     Dosage: 30 MG, QD
     Dates: start: 20130120

REACTIONS (1)
  - Nausea [Recovering/Resolving]
